FAERS Safety Report 25250730 (Version 2)
Quarter: 2025Q2

REPORT INFORMATION
  Report Type: Spontaneous
  Country: FR (occurrence: FR)
  Receive Date: 20250429
  Receipt Date: 20250506
  Transmission Date: 20250717
  Serious: Yes (Other)
  Sender: AUROBINDO
  Company Number: FR-BRISTOL-MYERS SQUIBB COMPANY-2024-186993

PATIENT
  Age: 72 Year
  Sex: Male
  Weight: 61 kg

DRUGS (6)
  1. AMLODIPINE BESYLATE [Interacting]
     Active Substance: AMLODIPINE BESYLATE
     Indication: Blood pressure abnormal
     Dosage: 10 MILLIGRAM, ONCE A DAY(~IN THE MORNING )
     Route: 065
  2. IRBESARTAN [Interacting]
     Active Substance: IRBESARTAN
     Indication: Product used for unknown indication
     Route: 065
  3. ELIQUIS [Interacting]
     Active Substance: APIXABAN
     Indication: Atrial fibrillation
     Dosage: 5 MILLIGRAM, TWO TIMES A DAY
     Route: 048
     Dates: start: 2022
  4. ELIQUIS [Interacting]
     Active Substance: APIXABAN
     Dosage: 2.5 MILLIGRAM, TWO TIMES A DAY(TO SWALLOW WITH GLASS OF WATER)
     Route: 048
     Dates: start: 202401
  5. EZETIMIBE\SIMVASTATIN [Interacting]
     Active Substance: EZETIMIBE\SIMVASTATIN
     Indication: Product used for unknown indication
     Dosage: 1 DOSAGE FORM, ONCE A DAY(1 TABLET IN THE EVENING; STRENGTH - 10MG/20MG)
     Route: 065
  6. NEBIVOLOL [Interacting]
     Active Substance: NEBIVOLOL
     Indication: Product used for unknown indication
     Dosage: 1.25 MILLIGRAM, ONCE A DAY(1/4 TABLET IN THE MORNING DURING A MEAL)
     Route: 065

REACTIONS (5)
  - Renal impairment [Unknown]
  - Pulmonary alveolar haemorrhage [Recovered/Resolved]
  - Glomerular filtration rate decreased [Unknown]
  - Haemoptysis [Unknown]
  - Drug interaction [Unknown]

NARRATIVE: CASE EVENT DATE: 20240821
